FAERS Safety Report 8281617-3 (Version None)
Quarter: 2012Q2

REPORT INFORMATION
  Report Type: 
  Country: None (occurrence: None)
  Receive Date: 20120413
  Receipt Date: 20120403
  Transmission Date: 20120825
  Serious: Yes (Hospitalization)
  Sender: FDA-Public Use
  Company Number: CA-JNJFOC-20120402400

PATIENT
  Sex: Male
  Weight: 90 kg

DRUGS (5)
  1. REMICADE [Suspect]
     Indication: CROHN'S DISEASE
     Route: 042
     Dates: end: 20120403
  2. VITAMIN B-12 [Concomitant]
     Route: 065
  3. REMICADE [Suspect]
     Route: 042
  4. IRON [Concomitant]
     Route: 065
  5. PREDNISONE TAB [Concomitant]
     Dosage: 30 MG TAPERED TO 15 MG
     Route: 048

REACTIONS (3)
  - ARTHRALGIA [None]
  - CLOSTRIDIAL INFECTION [None]
  - ERYTHEMA NODOSUM [None]
